FAERS Safety Report 8611990-5 (Version None)
Quarter: 2012Q3

REPORT INFORMATION
  Report Type: 
  Country: None (occurrence: None)
  Receive Date: 20120822
  Receipt Date: 20120821
  Transmission Date: 20120928
  Serious: Yes (Hospitalization)
  Sender: FDA-Public Use
  Company Number: US-GLAXOSMITHKLINE-A0924985A

PATIENT
  Age: 56 Year
  Sex: Female
  Weight: 91.2 kg

DRUGS (5)
  1. PACLITAXEL [Suspect]
     Indication: BREAST CANCER
     Dosage: 65MGM2 CYCLIC
     Route: 042
     Dates: start: 20110203, end: 20110413
  2. PAZOPANIB [Suspect]
     Indication: BREAST CANCER
     Dosage: 400MG PER DAY
     Route: 048
     Dates: start: 20110203, end: 20110410
  3. CYCLOPHOSPHAMIDE [Suspect]
     Indication: BREAST CANCER
     Route: 042
     Dates: start: 20101110, end: 20110112
  4. DOXORUBICIN HYDROCHLORIDE [Suspect]
     Indication: BREAST CANCER
     Dosage: 60MGM2 CYCLIC
     Route: 042
     Dates: start: 20101110, end: 20110112
  5. ARMODAFINIL [Concomitant]

REACTIONS (2)
  - ANAEMIA [None]
  - INFECTION [None]
